FAERS Safety Report 7368010-2 (Version None)
Quarter: 2011Q1

REPORT INFORMATION
  Report Type: 
  Country: None (occurrence: None)
  Receive Date: 20110322
  Receipt Date: 20110310
  Transmission Date: 20110831
  Serious: Yes (Other)
  Sender: FDA-Public Use
  Company Number: SG-BAYER-2011-021426

PATIENT
  Age: 81 Year
  Sex: Female

DRUGS (1)
  1. CIPRO XR [Suspect]
     Indication: PRODUCT USED FOR UNKNOWN INDICATION
     Route: 048

REACTIONS (2)
  - PERIORBITAL OEDEMA [None]
  - TUBULOINTERSTITIAL NEPHRITIS [None]
